FAERS Safety Report 23811538 (Version 2)
Quarter: 2025Q3

REPORT INFORMATION
  Report Type: Report from Study
  Country: ZA (occurrence: ZA)
  Receive Date: 20240503
  Receipt Date: 20250805
  Transmission Date: 20251020
  Serious: Yes (Death)
  Sender: ABBVIE
  Company Number: ZA-ABBOTT-2024A-1380809

PATIENT
  Age: 69 Year
  Sex: Male

DRUGS (11)
  1. CREON [Suspect]
     Active Substance: PANCRELIPASE AMYLASE\PANCRELIPASE LIPASE\PANCRELIPASE PROTEASE
     Indication: Pancreatic failure
     Route: 048
  2. TEMOZOLOMIDE [Concomitant]
     Active Substance: TEMOZOLOMIDE
     Indication: Neoplasm malignant
     Route: 048
  3. TEMOZOLOMIDE [Concomitant]
     Active Substance: TEMOZOLOMIDE
     Indication: Neoplasm malignant
     Route: 048
  4. TEMOZOLOMIDE [Concomitant]
     Active Substance: TEMOZOLOMIDE
     Indication: Neoplasm malignant
     Route: 048
  5. ALDACTONE [Concomitant]
     Active Substance: SPIRONOLACTONE
     Indication: Hypertension
     Dosage: 25 MG TAKE TWO TABLETS ONCE A DAY
     Route: 048
  6. LANREOTIDE ACETATE [Concomitant]
     Active Substance: LANREOTIDE ACETATE
     Indication: Neoplasm malignant
     Route: 048
  7. LANSOPRAZOLE [Concomitant]
     Active Substance: LANSOPRAZOLE
     Indication: Ulcer
     Route: 048
  8. GLICLAZIDE [Concomitant]
     Active Substance: GLICLAZIDE
     Indication: Diabetes mellitus
     Route: 048
  9. METFORMIN HYDROCHLORIDE [Concomitant]
     Active Substance: METFORMIN HYDROCHLORIDE
     Indication: Diabetes mellitus
     Dosage: 1000 MG TAKE ONE TABLET TWICE A DAY
     Route: 048
  10. CAPECITABINE [Concomitant]
     Active Substance: CAPECITABINE
     Indication: Neoplasm malignant
     Route: 048
  11. ALBUTEROL SULFATE [Concomitant]
     Active Substance: ALBUTEROL SULFATE
     Indication: Asthma
     Route: 048

REACTIONS (1)
  - Death [Fatal]

NARRATIVE: CASE EVENT DATE: 20240401
